FAERS Safety Report 9864692 (Version 2)
Quarter: 2014Q2

REPORT INFORMATION
  Report Type: Spontaneous
  Country: US (occurrence: US)
  Receive Date: 20140203
  Receipt Date: 20140402
  Transmission Date: 20141212
  Serious: Yes (Hospitalization)
  Sender: FDA-Public Use
  Company Number: US-AMGEN-USASP2014004291

PATIENT
  Age: 21 Year
  Sex: Female

DRUGS (1)
  1. ENBREL [Suspect]
     Indication: PSORIATIC ARTHROPATHY
     Dosage: UNK, QWK
     Route: 065
     Dates: start: 201401, end: 2014

REACTIONS (8)
  - Tonsillitis [Recovered/Resolved]
  - Pharyngitis streptococcal [Recovered/Resolved]
  - Abscess [Recovered/Resolved]
  - Oropharyngeal pain [Not Recovered/Not Resolved]
  - Pharyngeal inflammation [Not Recovered/Not Resolved]
  - Local swelling [Recovered/Resolved]
  - Abdominal discomfort [Recovered/Resolved]
  - Epstein-Barr virus test positive [Not Recovered/Not Resolved]
